FAERS Safety Report 17915782 (Version 1)
Quarter: 2020Q2

REPORT INFORMATION
  Report Type: Report from Study
  Country: US (occurrence: US)
  Receive Date: 20200619
  Receipt Date: 20200619
  Transmission Date: 20200714
  Serious: Yes (Death)
  Sender: FDA-Public Use
  Company Number: US-COVIS PHARMA B.V.-2020COV00250

PATIENT
  Age: 57 Year
  Sex: Female

DRUGS (12)
  1. PRILOSEC [Suspect]
     Active Substance: OMEPRAZOLE MAGNESIUM
     Route: 048
  2. XARELTO [Concomitant]
     Active Substance: RIVAROXABAN
  3. STOOL SOFTENER (DOCUSATE) [Concomitant]
     Active Substance: DOCUSATE
  4. OLANZAPINE. [Concomitant]
     Active Substance: OLANZAPINE
  5. VITAMIN B COMPLEX [Concomitant]
     Active Substance: CYANOCOBALAMIN\DEXPANTHENOL\NIACINAMIDE\PYRIDOXINE HYDROCHLORIDE\RIBOFLAVIN 5^-PHOSPHATE SODIUM\THIAMINE HYDROCHLORIDE\VITAMIN B COMPLEX
  6. METOPROLOL. [Suspect]
     Active Substance: METOPROLOL
  7. ONDANSETRON [Concomitant]
     Active Substance: ONDANSETRON
  8. FAMOTIDINE. [Concomitant]
     Active Substance: FAMOTIDINE
  9. TURMERIC [Concomitant]
     Active Substance: HERBALS\TURMERIC
  10. LORAZEPAM. [Concomitant]
     Active Substance: LORAZEPAM
  11. TAGRISSO [Suspect]
     Active Substance: OSIMERTINIB
     Indication: LUNG NEOPLASM MALIGNANT
     Dosage: 80 MG, 1X/DAY
     Route: 048
     Dates: start: 20191210, end: 20200510
  12. DEXAMETHASONE. [Concomitant]
     Active Substance: DEXAMETHASONE

REACTIONS (1)
  - Death [Fatal]

NARRATIVE: CASE EVENT DATE: 20200510
